FAERS Safety Report 22600816 (Version 2)
Quarter: 2024Q3

REPORT INFORMATION
  Report Type: Spontaneous
  Country: RS (occurrence: RS)
  Receive Date: 20230614
  Receipt Date: 20240710
  Transmission Date: 20241016
  Serious: Yes (Other)
  Sender: RANBAXY
  Company Number: RS-SUN PHARMACEUTICAL INDUSTRIES LTD-2023R1-392841

PATIENT
  Age: 34 Year
  Sex: Female

DRUGS (2)
  1. MIRTAZAPINE [Suspect]
     Active Substance: MIRTAZAPINE
     Indication: Avoidant personality disorder
     Dosage: 15 MILLIGRAM, DAILY
     Route: 065
  2. MIRTAZAPINE [Suspect]
     Active Substance: MIRTAZAPINE
     Dosage: 30 MILLIGRAM, DAILY
     Route: 065

REACTIONS (1)
  - Hyponatraemia [Recovered/Resolved]
